FAERS Safety Report 5700468-4 (Version None)
Quarter: 2008Q2

REPORT INFORMATION
  Report Type: 
  Country: None (occurrence: None)
  Receive Date: 20080410
  Receipt Date: 20080401
  Transmission Date: 20081010
  Serious: Yes (Other)
  Sender: FDA-Public Use
  Company Number: US-JNJFOC-20080400764

PATIENT
  Sex: Female
  Weight: 62.14 kg

DRUGS (6)
  1. FENTANYL TRANSDERMAL SYSTEM [Suspect]
     Indication: ABDOMINAL PAIN UPPER
     Route: 062
  2. XANAX [Suspect]
     Route: 048
  3. XANAX [Suspect]
     Indication: PULMONARY HYPERTENSION
     Route: 048
  4. ATIVAN [Concomitant]
     Indication: SLEEP DISORDER
     Dosage: IN THE EVENING
     Route: 048
  5. PERCOCET [Concomitant]
     Indication: BREAKTHROUGH PAIN
     Route: 048
  6. BENTYL [Concomitant]
     Indication: COLITIS
     Route: 048

REACTIONS (6)
  - APPLICATION SITE ERYTHEMA [None]
  - APPLICATION SITE URTICARIA [None]
  - DRUG TOLERANCE [None]
  - INTESTINAL OBSTRUCTION [None]
  - NAIL DISCOLOURATION [None]
  - WRONG TECHNIQUE IN DRUG USAGE PROCESS [None]
